FAERS Safety Report 10099971 (Version 1)
Quarter: 2014Q2

REPORT INFORMATION
  Report Type: Spontaneous
  Country: FR (occurrence: FR)
  Receive Date: 20140423
  Receipt Date: 20140423
  Transmission Date: 20141212
  Serious: Yes (Other)
  Sender: FDA-Public Use
  Company Number: FR-ASTELLAS-2014EU004030

PATIENT
  Age: 76 Year
  Sex: Male
  Weight: 53 kg

DRUGS (1)
  1. MYCAMINE [Suspect]
     Indication: PROPHYLAXIS
     Route: 065

REACTIONS (1)
  - Aspergillus infection [Unknown]
